FAERS Safety Report 8367652-5 (Version None)
Quarter: 2012Q2

REPORT INFORMATION
  Report Type: 
  Country: None (occurrence: None)
  Receive Date: 20120517
  Receipt Date: 20120514
  Transmission Date: 20120825
  Serious: No
  Sender: FDA-Public Use
  Company Number: US-ASTRAZENECA-2012SE28025

PATIENT
  Age: 75 Year
  Sex: Female
  Weight: 48.5 kg

DRUGS (5)
  1. SYMBICORT [Suspect]
     Dosage: ONE PUFF, AT NIGHT
     Route: 055
  2. METOPROLOL [Suspect]
     Indication: BLOOD PRESSURE ABNORMAL
     Route: 065
  3. GABAPENTIN [Concomitant]
     Indication: PAIN
     Route: 048
  4. LISINOPRIL [Suspect]
     Indication: BLOOD PRESSURE ABNORMAL
     Route: 048
  5. SYMBICORT [Suspect]
     Indication: ASTHMA
     Dosage: TWO PUFFS, UNKNOWN
     Route: 055

REACTIONS (2)
  - INTENTIONAL DRUG MISUSE [None]
  - DYSPNOEA [None]
